FAERS Safety Report 4325086-4 (Version None)
Quarter: 2004Q1

REPORT INFORMATION
  Report Type: 
  Country: None (occurrence: None)
  Receive Date: 20040323
  Receipt Date: 20040311
  Transmission Date: 20041129
  Serious: Yes (Death, Life-Threatening)
  Sender: FDA-Public Use
  Company Number: 2004203941JP

PATIENT
  Age: 64 Year
  Sex: Male

DRUGS (3)
  1. ADRIACIN (DOXORUBICIN HYDROCHLORIDE) POWDER, STERILE [Suspect]
     Indication: ANAPLASTIC THYROID CANCER
     Dosage: 50 MG, CYCLE 1, FOR 1 DAY, IV
     Route: 042
     Dates: start: 19950502
  2. ETOPOSIDE [Suspect]
     Indication: ANAPLASTIC THYROID CANCER
     Dosage: 80 MG, CYCLE 1, FOR 5 DAYS, IV
     Route: 042
     Dates: start: 19950502
  3. CISPLATIN [Suspect]
     Indication: ANAPLASTIC THYROID CANCER
     Dosage: 130 MG, CYCLE 1, FOR 1 DAY, IV
     Route: 042
     Dates: start: 19950502

REACTIONS (2)
  - PANCYTOPENIA [None]
  - PULMONARY HAEMORRHAGE [None]
